FAERS Safety Report 9689495 (Version 1)
Quarter: 2013Q4

REPORT INFORMATION
  Report Type: Spontaneous
  Country: DK (occurrence: DK)
  Receive Date: 20131114
  Receipt Date: 20131114
  Transmission Date: 20140711
  Serious: Yes (Life-Threatening, Hospitalization)
  Sender: FDA-Public Use
  Company Number: DK-009507513-1311DNK004115

PATIENT
  Age: 87 Year
  Sex: Female

DRUGS (11)
  1. COZAAR COMP. 100 MG/12,5 MG [Suspect]
     Indication: HYPERTENSION
     Dosage: STYRKE: 100+12,5 MG.
     Route: 048
     Dates: start: 2002, end: 20131028
  2. FURIX [Concomitant]
     Dosage: DOSIS: UKENDT
     Route: 048
  3. PERILAX [Concomitant]
     Dosage: DOSIS: UKENDT
  4. BETOLVEX [Concomitant]
     Indication: VITAMIN SUPPLEMENTATION
  5. CLOPIDOGREL [Concomitant]
  6. ELTROXIN [Concomitant]
  7. PINEX [Concomitant]
  8. KALEORID [Concomitant]
  9. CARVEDILOL [Concomitant]
  10. JERN C [Concomitant]
  11. SIMVASTATIN [Concomitant]

REACTIONS (5)
  - Disability [Recovering/Resolving]
  - Dehydration [Recovering/Resolving]
  - Hyponatraemia [Recovering/Resolving]
  - Nausea [Recovering/Resolving]
  - Vomiting [Recovering/Resolving]
